FAERS Safety Report 7282778-5 (Version None)
Quarter: 2010Q4

REPORT INFORMATION
  Report Type: 
  Country: None (occurrence: None)
  Receive Date: 20101221
  Receipt Date: 20100520
  Transmission Date: 20110411
  Serious: Yes (Other)
  Sender: FDA-Public Use
  Company Number: WAES 1005USA02809

PATIENT
  Age: 48 Year
  Sex: Male
  Weight: 94.3482 kg

DRUGS (7)
  1. JANUVIA [Suspect]
     Indication: TYPE 2 DIABETES MELLITUS
     Dosage: 100 MG/DAILY/PO
     Route: 048
  2. AVAPRO [Concomitant]
  3. METFORMIN HCL [Concomitant]
  4. LIPITOR [Concomitant]
  5. PLAVIX [Concomitant]
  6. GLYBURIDE [Concomitant]
  7. METFORMIN HCL [Concomitant]

REACTIONS (2)
  - CHOLECYSTITIS [None]
  - PANCREATITIS [None]
